FAERS Safety Report 9191222 (Version 1)
Quarter: 2013Q1

REPORT INFORMATION
  Report Type: Spontaneous
  Country: US (occurrence: US)
  Receive Date: 20130326
  Receipt Date: 20130326
  Transmission Date: 20140127
  Serious: No
  Sender: FDA-Public Use
  Company Number: US-ASTRAZENECA-2013SE17297

PATIENT
  Sex: Female

DRUGS (2)
  1. FASLODEX [Suspect]
     Indication: NEOPLASM MALIGNANT
     Route: 030
  2. FASLODEX [Suspect]
     Indication: NEOPLASM MALIGNANT
     Route: 030

REACTIONS (3)
  - Epistaxis [Not Recovered/Not Resolved]
  - Arthralgia [Unknown]
  - Bone pain [Unknown]
